FAERS Safety Report 6833412-7 (Version None)
Quarter: 2010Q3

REPORT INFORMATION
  Report Type: 
  Country: None (occurrence: None)
  Receive Date: 20100712
  Receipt Date: 20070319
  Transmission Date: 20110219
  Serious: No
  Sender: FDA-Public Use
  Company Number: US-PFIZER INC-2007022727

PATIENT
  Age: 33 Year
  Sex: Male
  Weight: 79.38 kg

DRUGS (4)
  1. CHANTIX [Suspect]
     Indication: SMOKING CESSATION THERAPY
     Dosage: INTERVAL: EVERY DAY
     Dates: start: 20070101
  2. TRAZODONE [Suspect]
     Indication: INSOMNIA
     Dates: start: 20070101
  3. KLONOPIN [Concomitant]
  4. AMBIEN [Concomitant]

REACTIONS (5)
  - ABNORMAL DREAMS [None]
  - HANGOVER [None]
  - INSOMNIA [None]
  - SLEEP DISORDER [None]
  - UNEVALUABLE EVENT [None]
